FAERS Safety Report 5195083-8 (Version None)
Quarter: 2006Q4

REPORT INFORMATION
  Report Type: 
  Country: None (occurrence: None)
  Receive Date: 20061229
  Receipt Date: 20061215
  Transmission Date: 20070319
  Serious: Yes (Death, Other)
  Sender: FDA-Public Use
  Company Number: GB-SHR-GB-2006-039523

PATIENT
  Age: 59 Year
  Sex: Male

DRUGS (4)
  1. FLUDARA [Suspect]
     Dosage: 80 MG, 3X/WEEK
     Route: 048
     Dates: start: 20060704, end: 20060706
  2. FLUDARA [Suspect]
     Dosage: 80 MG, 3X/WEEK
     Route: 048
     Dates: start: 20060802, end: 20060805
  3. CYCLOPHOSPHAMIDE [Concomitant]
     Dosage: 500 MG, UNK
     Route: 048
     Dates: start: 20060704
  4. NEUPOGEN [Concomitant]
     Indication: COLONY STIMULATING FACTOR PROPHYLAXIS

REACTIONS (3)
  - ANAEMIA HAEMOLYTIC AUTOIMMUNE [None]
  - DISSEMINATED INTRAVASCULAR COAGULATION [None]
  - PULMONARY EMBOLISM [None]
